FAERS Safety Report 6124754-1 (Version None)
Quarter: 2009Q1

REPORT INFORMATION
  Report Type: 
  Country: None (occurrence: None)
  Receive Date: 20090319
  Receipt Date: 20090306
  Transmission Date: 20090719
  Serious: Yes (Other)
  Sender: FDA-Public Use
  Company Number: NO-PFIZER INC-2009180232

PATIENT

DRUGS (2)
  1. PROVERA [Suspect]
     Indication: ENDOMETRIAL HYPERPLASIA
     Dosage: 10 MG, 1X/DAY
     Route: 048
     Dates: start: 20090112
  2. VALLERGAN [Concomitant]
     Dosage: 20 MG, UNK
     Route: 048

REACTIONS (4)
  - CHEST PAIN [None]
  - DIZZINESS [None]
  - HEART RATE INCREASED [None]
  - PAIN IN EXTREMITY [None]
